FAERS Safety Report 9563172 (Version 1)
Quarter: 2013Q3

REPORT INFORMATION
  Report Type: Spontaneous
  Country: US (occurrence: US)
  Receive Date: 20130927
  Receipt Date: 20130927
  Transmission Date: 20140515
  Serious: Yes (Other)
  Sender: FDA-Public Use
  Company Number: US-BRISTOL-MYERS SQUIBB COMPANY-18783092

PATIENT
  Age: 4 Decade
  Sex: Female

DRUGS (1)
  1. ONGLYZA TABS [Suspect]

REACTIONS (1)
  - Pancreatitis [Unknown]
